FAERS Safety Report 9067302 (Version 3)
Quarter: 2013Q1

REPORT INFORMATION
  Report Type: Report from Study
  Country: PH (occurrence: PH)
  Receive Date: 20130201
  Receipt Date: 20130321
  Transmission Date: 20140127
  Serious: Yes (Hospitalization)
  Sender: FDA-Public Use
  Company Number: PH-EISAI INC-E2007-00594-CLI-PH

PATIENT
  Age: 44 None
  Sex: Female
  Weight: 55 kg

DRUGS (5)
  1. E2007 (PERAMPANEL) [Suspect]
     Indication: EPILEPSY
     Dosage: DOUBLE BLIND CONVERSION PERIOD
     Route: 048
     Dates: start: 20091112, end: 20091217
  2. E2007 (PERAMPANEL) [Suspect]
     Dosage: DOUBLE BLIND CONVERSION PHASE DOWN TITRATION
     Route: 048
     Dates: start: 20091221, end: 20100103
  3. E2007 (PERAMPANEL) [Suspect]
     Dosage: DOUBLE BLIND CONVERSION PHASE DOWN TITRATION
     Route: 048
     Dates: start: 20100104, end: 20100312
  4. E2007 (PERAMPANEL) [Suspect]
     Route: 048
     Dates: start: 20100313, end: 20120815
  5. DEPAKOTE ER [Concomitant]
     Indication: EPILEPSY
     Route: 048
     Dates: start: 20080915

REACTIONS (9)
  - Hemiparesis [Recovered/Resolved]
  - Disorientation [Recovered/Resolved]
  - Incoherent [Recovered/Resolved]
  - Cognitive disorder [Recovered/Resolved]
  - Uterine haemorrhage [Recovered/Resolved]
  - Hypoaesthesia [Recovered/Resolved]
  - Headache [Recovered/Resolved]
  - Dizziness [Recovered/Resolved]
  - Somnolence [Recovered/Resolved]
